FAERS Safety Report 16170323 (Version 2)
Quarter: 2019Q4

REPORT INFORMATION
  Report Type: Spontaneous
  Country: CA (occurrence: CA)
  Receive Date: 20190408
  Receipt Date: 20191217
  Transmission Date: 20200122
  Serious: Yes (Other)
  Sender: FDA-Public Use
  Company Number: CA-TEVA-2019-CA-1034974

PATIENT
  Age: 76 Year
  Sex: Female

DRUGS (33)
  1. SODIUM AUROTHIOMALATE INJECTION BP [Suspect]
     Active Substance: GOLD SODIUM THIOMALATE
     Indication: PRODUCT USED FOR UNKNOWN INDICATION
     Route: 065
  2. XELJANZ [Suspect]
     Active Substance: TOFACITINIB CITRATE
     Indication: PRODUCT USED FOR UNKNOWN INDICATION
     Route: 065
  3. OMNARIS [Concomitant]
     Active Substance: CICLESONIDE
     Route: 065
  4. KENALOG [Concomitant]
     Active Substance: TRIAMCINOLONE ACETONIDE
     Route: 014
  5. LOPERAMIDE [Concomitant]
     Active Substance: LOPERAMIDE
  6. RESTASIS [Concomitant]
     Active Substance: CYCLOSPORINE
  7. ENBREL [Suspect]
     Active Substance: ETANERCEPT
     Indication: RHEUMATOID ARTHRITIS
     Route: 065
  8. HYDROXYCHLOROQUINE [Suspect]
     Active Substance: HYDROXYCHLOROQUINE
     Route: 065
  9. ATIVAN [Concomitant]
     Active Substance: LORAZEPAM
  10. DILAUDID [Concomitant]
     Active Substance: HYDROMORPHONE HYDROCHLORIDE
  11. KADIAN [Concomitant]
     Active Substance: MORPHINE SULFATE
     Route: 065
  12. OXYNEO [Concomitant]
     Active Substance: OXYCODONE
     Route: 065
  13. RITUXAN [Concomitant]
     Active Substance: RITUXIMAB
     Route: 042
  14. SYNTHROID [Concomitant]
     Active Substance: LEVOTHYROXINE SODIUM
  15. METHOTREXATE. [Suspect]
     Active Substance: METHOTREXATE
     Indication: PRODUCT USED FOR UNKNOWN INDICATION
     Dosage: 25 MILLIGRAM DAILY;
     Route: 065
  16. HUMIRA [Suspect]
     Active Substance: ADALIMUMAB
     Indication: PRODUCT USED FOR UNKNOWN INDICATION
     Route: 058
  17. CODEINE [Concomitant]
     Active Substance: CODEINE
  18. DEXAMETHASONE. [Concomitant]
     Active Substance: DEXAMETHASONE
  19. ENABLEX [Concomitant]
     Active Substance: DARIFENACIN HYDROBROMIDE
     Route: 065
  20. LASIX [Concomitant]
     Active Substance: FUROSEMIDE
  21. NORFLEX [Concomitant]
     Active Substance: ORPHENADRINE CITRATE
  22. ACTEMRA [Suspect]
     Active Substance: TOCILIZUMAB
     Indication: PRODUCT USED FOR UNKNOWN INDICATION
     Route: 065
  23. ARAVA [Suspect]
     Active Substance: LEFLUNOMIDE
     Indication: PRODUCT USED FOR UNKNOWN INDICATION
     Dosage: 20 MILLIGRAM DAILY;
     Route: 065
  24. HYDROMORPHONE [Concomitant]
     Active Substance: HYDROMORPHONE
  25. ORENCIA [Suspect]
     Active Substance: ABATACEPT
     Indication: PRODUCT USED FOR UNKNOWN INDICATION
     Route: 065
  26. ACETAMINOPHEN. [Concomitant]
     Active Substance: ACETAMINOPHEN
  27. ANAKINRA [Concomitant]
     Active Substance: ANAKINRA
     Route: 065
  28. PANTOPRAZOLE SODIUM ANHYDROUS [Concomitant]
     Active Substance: PANTOPRAZOLE SODIUM ANHYDROUS
  29. TRIMETHOPRIM. [Concomitant]
     Active Substance: TRIMETHOPRIM
     Route: 065
  30. VAGIFEM [Concomitant]
     Active Substance: ESTRADIOL
     Route: 065
  31. DESOXIMETASONE. [Concomitant]
     Active Substance: DESOXIMETASONE
  32. DIPHENHYDRAMINE. [Concomitant]
     Active Substance: DIPHENHYDRAMINE
  33. HYDROXYCHLOROQUINE [Suspect]
     Active Substance: HYDROXYCHLOROQUINE
     Indication: PRODUCT USED FOR UNKNOWN INDICATION
     Dosage: 400 GBQ DAILY;
     Route: 065

REACTIONS (16)
  - Therapeutic product effect incomplete [Unknown]
  - Infection [Unknown]
  - Leukopenia [Unknown]
  - Drug ineffective [Unknown]
  - Joint swelling [Unknown]
  - Peripheral swelling [Unknown]
  - Fibromyalgia [Unknown]
  - Herpes zoster [Unknown]
  - Liver function test abnormal [Unknown]
  - Synovitis [Unknown]
  - Pneumonia viral [Unknown]
  - Anaemia [Unknown]
  - Arthralgia [Unknown]
  - Blood cholesterol increased [Unknown]
  - Soft tissue disorder [Unknown]
  - Arthritis [Unknown]
